FAERS Safety Report 4348911-X (Version None)
Quarter: 2004Q2

REPORT INFORMATION
  Report Type: 
  Country: None (occurrence: None)
  Receive Date: 20040421
  Receipt Date: 20040225
  Transmission Date: 20050107
  Serious: No
  Sender: FDA-Public Use
  Company Number: 30018621-C581371-1

PATIENT
  Age: 61 Year
  Sex: Female
  Weight: 61.4987 kg

DRUGS (12)
  1. EXTRANEAL [Suspect]
     Indication: PERITONEAL DIALYSIS
     Dosage: 7.5% ICODEXTRIN 2L QD IP
     Route: 033
     Dates: start: 20040212, end: 20040225
  2. DIANEAL [Concomitant]
  3. EPOGEN [Concomitant]
  4. FEOSOL [Concomitant]
  5. NORVASC [Concomitant]
  6. MUIPROCIN [Concomitant]
  7. COZAAR [Concomitant]
  8. HECTOROL [Concomitant]
  9. SUGAR [Concomitant]
  10. LANTUS [Concomitant]
  11. LABETALOL HCL [Concomitant]
  12. MONOPRIL [Concomitant]

REACTIONS (2)
  - GENERALISED ERYTHEMA [None]
  - PRURITUS [None]
